FAERS Safety Report 25800986 (Version 9)
Quarter: 2025Q4

REPORT INFORMATION
  Report Type: Spontaneous
  Country: CA (occurrence: CA)
  Receive Date: 20250915
  Receipt Date: 20251022
  Transmission Date: 20260119
  Serious: Yes (Death, Life-Threatening, Other)
  Sender: TEVA
  Company Number: CA-TEVA-VS-3372046

PATIENT
  Age: 79 Year
  Sex: Male

DRUGS (40)
  1. PREDNISOLONE [Suspect]
     Active Substance: PREDNISOLONE
     Indication: Polymyalgia rheumatica
     Dosage: DOSE FORM: NOT SPECIFIED
     Route: 065
  2. PREDNISOLONE [Suspect]
     Active Substance: PREDNISOLONE
     Indication: Polymyalgia rheumatica
     Route: 065
  3. SARILUMAB [Suspect]
     Active Substance: SARILUMAB
     Indication: Polymyalgia rheumatica
     Route: 058
  4. CYCLOSPORINE [Suspect]
     Active Substance: CYCLOSPORINE
     Indication: Polymyalgia rheumatica
     Route: 065
  5. METHOTREXATE [Suspect]
     Active Substance: METHOTREXATE
     Indication: Polymyalgia rheumatica
     Route: 065
  6. METHOTREXATE [Suspect]
     Active Substance: METHOTREXATE
     Indication: Polymyalgia rheumatica
     Route: 058
  7. MYCOPHENOLATE MOFETIL [Suspect]
     Active Substance: MYCOPHENOLATE MOFETIL
     Indication: Polymyalgia rheumatica
     Dosage: DOSE FORM: NOT SPECIFIED
     Route: 065
  8. MYCOPHENOLATE MOFETIL [Suspect]
     Active Substance: MYCOPHENOLATE MOFETIL
     Indication: Polymyalgia rheumatica
     Dosage: DURATION: 730 UNKNOWN
     Route: 065
  9. MYCOPHENOLATE MOFETIL [Suspect]
     Active Substance: MYCOPHENOLATE MOFETIL
     Indication: Polymyalgia rheumatica
     Route: 065
  10. MYCOPHENOLATE MOFETIL [Suspect]
     Active Substance: MYCOPHENOLATE MOFETIL
     Indication: Autoinflammatory disease
     Dosage: DOSE FORM: NOT SPECIFIED
     Route: 065
  11. MYCOPHENOLATE MOFETIL [Suspect]
     Active Substance: MYCOPHENOLATE MOFETIL
     Indication: Autoinflammatory disease
     Route: 065
  12. MYCOPHENOLATE MOFETIL [Suspect]
     Active Substance: MYCOPHENOLATE MOFETIL
     Indication: Autoinflammatory disease
     Route: 065
  13. CYCLOSPORINE [Suspect]
     Active Substance: CYCLOSPORINE
     Indication: Autoinflammatory disease
     Dosage: DOSE FORM: NOT SPECIFIED
     Route: 065
  14. CYCLOSPORINE [Suspect]
     Active Substance: CYCLOSPORINE
     Indication: Autoinflammatory disease
     Dosage: DURATION: 730 UNKNOWN
     Route: 065
  15. CYCLOSPORINE [Suspect]
     Active Substance: CYCLOSPORINE
     Indication: Autoinflammatory disease
     Route: 065
  16. TOFACITINIB CITRATE [Suspect]
     Active Substance: TOFACITINIB CITRATE
     Indication: Autoinflammatory disease
     Route: 065
  17. TOFACITINIB CITRATE [Suspect]
     Active Substance: TOFACITINIB CITRATE
     Indication: Autoinflammatory disease
     Dosage: DURATION: 730 UNKNOWN
     Route: 065
  18. TOFACITINIB CITRATE [Suspect]
     Active Substance: TOFACITINIB CITRATE
     Indication: Autoinflammatory disease
     Route: 065
  19. TOFACITINIB CITRATE [Suspect]
     Active Substance: TOFACITINIB CITRATE
     Indication: Autoinflammatory disease
     Route: 065
  20. PREDNISONE [Suspect]
     Active Substance: PREDNISONE
     Indication: Autoinflammatory disease
     Dosage: DOSE FORM: NOT SPECIFIED
     Route: 065
  21. PREDNISONE [Suspect]
     Active Substance: PREDNISONE
     Indication: Autoinflammatory disease
     Route: 065
  22. PREDNISONE [Suspect]
     Active Substance: PREDNISONE
     Indication: Autoinflammatory disease
     Route: 065
  23. PREDNISONE [Suspect]
     Active Substance: PREDNISONE
     Indication: Autoinflammatory disease
     Route: 065
  24. PREDNISONE [Suspect]
     Active Substance: PREDNISONE
     Indication: Autoinflammatory disease
     Route: 065
  25. PREDNISONE [Suspect]
     Active Substance: PREDNISONE
     Indication: Autoinflammatory disease
     Dosage: DOSE FORM: NOT SPECIFIED
     Route: 065
  26. AZATHIOPRINE [Suspect]
     Active Substance: AZATHIOPRINE
     Indication: Autoinflammatory disease
     Dosage: DURATION: 730 UNKNOWN
     Route: 065
  27. AZATHIOPRINE [Suspect]
     Active Substance: AZATHIOPRINE
     Indication: Autoinflammatory disease
     Route: 065
  28. AZATHIOPRINE [Suspect]
     Active Substance: AZATHIOPRINE
     Indication: Autoinflammatory disease
     Route: 065
  29. AZATHIOPRINE [Suspect]
     Active Substance: AZATHIOPRINE
     Indication: Autoinflammatory disease
     Route: 065
  30. KEVZARA [Suspect]
     Active Substance: SARILUMAB
     Indication: Autoinflammatory disease
     Dosage: DURATION: 730 UNKNOWN
     Route: 058
  31. KEVZARA [Suspect]
     Active Substance: SARILUMAB
     Indication: Autoinflammatory disease
     Route: 065
  32. KEVZARA [Suspect]
     Active Substance: SARILUMAB
     Indication: Autoinflammatory disease
     Route: 058
  33. KEVZARA [Suspect]
     Active Substance: SARILUMAB
     Indication: Autoinflammatory disease
     Route: 065
  34. METHOTREXATE SODIUM [Suspect]
     Active Substance: METHOTREXATE SODIUM
     Indication: Autoinflammatory disease
     Dosage: DOSE FORM: NOT SPECIFIED
     Route: 058
  35. METHOTREXATE SODIUM [Suspect]
     Active Substance: METHOTREXATE SODIUM
     Indication: Autoinflammatory disease
     Dosage: METHOTREXATE INJECTION BP WITHOUT PRESERVATIVE (2 ML SINGLE-USE VIALS), DOSE FORM: SOLUTION INTRA...
     Route: 058
  36. METHOTREXATE SODIUM [Suspect]
     Active Substance: METHOTREXATE SODIUM
     Indication: Autoinflammatory disease
     Route: 058
  37. METHOTREXATE SODIUM [Suspect]
     Active Substance: METHOTREXATE SODIUM
     Indication: Autoinflammatory disease
     Route: 065
  38. MYCOPHENOLIC ACID [Suspect]
     Active Substance: MYCOPHENOLIC ACID
     Indication: Polymyalgia rheumatica
     Route: 065
  39. MYCOPHENOLIC ACID [Suspect]
     Active Substance: MYCOPHENOLIC ACID
     Indication: Polymyalgia rheumatica
     Route: 065
  40. METHOTREXATE SODIUM [Suspect]
     Active Substance: METHOTREXATE SODIUM
     Indication: Polymyalgia rheumatica
     Route: 058

REACTIONS (7)
  - COVID-19 pneumonia [Fatal]
  - Myelodysplastic syndrome [Fatal]
  - Pneumonia [Fatal]
  - Mycobacterium chelonae infection [Fatal]
  - Bacteraemia [Fatal]
  - Off label use [Fatal]
  - Drug ineffective [Fatal]
